FAERS Safety Report 5107744-7 (Version None)
Quarter: 2006Q3

REPORT INFORMATION
  Report Type: 
  Country: None (occurrence: None)
  Receive Date: 20060914
  Receipt Date: 20060906
  Transmission Date: 20061208
  Serious: Yes (Hospitalization, Other)
  Sender: FDA-Public Use
  Company Number: 2006070230

PATIENT
  Age: 53 Year
  Sex: Male

DRUGS (6)
  1. XALATAN [Suspect]
     Indication: GLAUCOMA
     Dosage: 1 DROP (1 IN 1 D),
     Dates: start: 20020322, end: 20040427
  2. XALCOM [Suspect]
     Indication: GLAUCOMA
     Dosage: ONE INTAKE (1 IN 1 D),
     Dates: start: 20040427, end: 20060528
  3. PILOCARPINE HYDROCHLORIDE [Suspect]
     Indication: DRUG USE FOR UNKNOWN INDICATION
     Dates: start: 20010101
  4. DIAMOX [Suspect]
     Indication: DRUG USE FOR UNKNOWN INDICATION
     Dates: start: 20010101
  5. BRIMONIDINE TARTRATE [Concomitant]
  6. ACETAZOLAMIDE [Concomitant]

REACTIONS (5)
  - ABDOMINAL PAIN UPPER [None]
  - CONDITION AGGRAVATED [None]
  - GLAUCOMA [None]
  - THROMBOCYTHAEMIA [None]
  - TRANSAMINASES INCREASED [None]
